FAERS Safety Report 6134925-6 (Version None)
Quarter: 2009Q1

REPORT INFORMATION
  Report Type: 
  Country: None (occurrence: None)
  Receive Date: 20090327
  Receipt Date: 20090317
  Transmission Date: 20090719
  Serious: No
  Sender: FDA-Public Use
  Company Number: US-WATSON-2009-01351

PATIENT
  Sex: Female

DRUGS (5)
  1. DOXYCYCLINE HYCLATE [Suspect]
     Indication: ACNE
     Dosage: 100 MG, BID
     Route: 048
     Dates: start: 20090207, end: 20090223
  2. DOXYCYCLINE HYCLATE [Suspect]
     Dosage: 100 MG, BID
     Route: 048
     Dates: start: 20081226, end: 20090207
  3. DOXYCYCLINE HYCLATE [Suspect]
     Dosage: 100 MG, DAILY
     Route: 048
     Dates: start: 20081001, end: 20081226
  4. TRIAZ [Concomitant]
     Indication: DRUG USE FOR UNKNOWN INDICATION
     Dosage: UNK
     Route: 061
  5. RETIN-A [Concomitant]
     Indication: DRUG USE FOR UNKNOWN INDICATION
     Dosage: UNK
     Route: 061

REACTIONS (3)
  - EPSTEIN-BARR VIRUS ANTIBODY POSITIVE [None]
  - EPSTEIN-BARR VIRUS ANTIGEN POSITIVE [None]
  - OCULAR ICTERUS [None]
